FAERS Safety Report 6267852-4 (Version None)
Quarter: 2009Q3

REPORT INFORMATION
  Report Type: 
  Country: None (occurrence: None)
  Receive Date: 20090710
  Receipt Date: 20090710
  Transmission Date: 20100115
  Serious: Yes (Other)
  Sender: FDA-Public Use
  Company Number: None

PATIENT
  Age: 62 Year
  Sex: Female
  Weight: 83.9154 kg

DRUGS (1)
  1. CELEBREX [Suspect]
     Indication: OSTEOARTHRITIS
     Dosage: 1 CAPSULE DAILY PO
     Route: 048
     Dates: start: 20090627, end: 20090706

REACTIONS (9)
  - CAPSULE ISSUE [None]
  - DIARRHOEA [None]
  - LYMPH NODE PAIN [None]
  - MYALGIA [None]
  - PAIN [None]
  - PRODUCT COUNTERFEIT [None]
  - PRODUCT SUBSTITUTION ISSUE [None]
  - SWELLING [None]
  - VOMITING [None]
